FAERS Safety Report 26139821 (Version 1)
Quarter: 2025Q4

REPORT INFORMATION
  Report Type: Spontaneous
  Country: US (occurrence: None)
  Receive Date: 20251210
  Receipt Date: 20251210
  Transmission Date: 20260117
  Serious: Yes (Other)
  Sender: FDA-CTU
  Company Number: None

PATIENT
  Age: 48 Year
  Sex: Female

DRUGS (1)
  1. RINVOQ [Suspect]
     Active Substance: UPADACITINIB
     Indication: Osteoarthritis
     Dosage: 15MG DAILY

REACTIONS (7)
  - Acne [None]
  - Influenza [None]
  - Pneumonia [None]
  - Therapy interrupted [None]
  - Muscle discomfort [None]
  - Arthralgia [None]
  - Chest pain [None]
